FAERS Safety Report 10353117 (Version 1)
Quarter: 2014Q3

REPORT INFORMATION
  Report Type: Spontaneous
  Country: US (occurrence: US)
  Receive Date: 20140730
  Receipt Date: 20140730
  Transmission Date: 20150326
  Serious: Yes (Other)
  Sender: FDA-Public Use
  Company Number: US-BAXTER-2014BAX043880

PATIENT
  Age: 14 Year
  Sex: Male

DRUGS (1)
  1. HEMOFIL M [Suspect]
     Active Substance: ANTIHEMOPHILIC FACTOR HUMAN
     Indication: HAEMOPHILIA
     Route: 065
     Dates: start: 1995

REACTIONS (13)
  - Haemophilia [Unknown]
  - Gastrointestinal injury [Unknown]
  - Chest discomfort [Unknown]
  - Ammonia increased [Unknown]
  - Chronic fatigue syndrome [Unknown]
  - Hepatitis C [Unknown]
  - Hepatic cirrhosis [Unknown]
  - Hepatic encephalopathy [Unknown]
  - Impulse-control disorder [Unknown]
  - Oesophageal injury [Unknown]
  - Hepatic mass [Unknown]
  - Affective disorder [Unknown]
  - Confusional state [Unknown]

NARRATIVE: CASE EVENT DATE: 1999
